FAERS Safety Report 5421258-6 (Version None)
Quarter: 2007Q3

REPORT INFORMATION
  Report Type: 
  Country: None (occurrence: None)
  Receive Date: 20070719
  Receipt Date: 20061128
  Transmission Date: 20080115
  Serious: Yes (Life-Threatening, Hospitalization)
  Sender: FDA-Public Use
  Company Number: OMPQ-PR-0611S-1495

PATIENT
  Age: 54 Year
  Sex: Female

DRUGS (2)
  1. OMNIPAQUE 140 [Suspect]
     Indication: LUMBAR RADICULOPATHY
     Dosage: 15 ML, SINGLE DOSE, I.T.
     Route: 037
     Dates: start: 20061102, end: 20061102
  2. LIDOCAINE [Concomitant]

REACTIONS (1)
  - MENINGITIS BACTERIAL [None]
